FAERS Safety Report 5564929-3 (Version None)
Quarter: 2007Q4

REPORT INFORMATION
  Report Type: 
  Country: None (occurrence: None)
  Receive Date: 20071214
  Receipt Date: 20071214
  Transmission Date: 20080405
  Serious: Yes (Other)
  Sender: FDA-Public Use
  Company Number: None

PATIENT
  Sex: Female
  Weight: 14.2883 kg

DRUGS (1)
  1. AMOXIL [Suspect]
     Indication: URINARY TRACT INFECTION
     Dosage: 1.5 TEASPOONS BID PO
     Route: 048
     Dates: start: 20071205, end: 20071213

REACTIONS (1)
  - RASH [None]
